FAERS Safety Report 23410116 (Version 1)
Quarter: 2024Q1

REPORT INFORMATION
  Report Type: Spontaneous
  Country: IT (occurrence: None)
  Receive Date: 20240117
  Receipt Date: 20240117
  Transmission Date: 20240410
  Serious: Yes (Other)
  Sender: FDA-Public Use
  Company Number: 2024A012094

PATIENT
  Age: 20 Year
  Sex: Male
  Weight: 83 kg

DRUGS (7)
  1. QUETIAPINE [Suspect]
     Active Substance: QUETIAPINE
     Route: 048
  2. QUETIAPINE [Suspect]
     Active Substance: QUETIAPINE
     Route: 048
  3. VORTIOXETINE [Suspect]
     Active Substance: VORTIOXETINE
     Dosage: 10 MG
  4. CITALOPRAM [Suspect]
     Active Substance: CITALOPRAM HYDROBROMIDE
     Dosage: 40 MG
  5. CITALOPRAM [Suspect]
     Active Substance: CITALOPRAM HYDROBROMIDE
     Dosage: 20 MG
  6. PREGABALIN [Suspect]
     Active Substance: PREGABALIN
     Dosage: 150 MG,
  7. DELORAZEPAM [Suspect]
     Active Substance: DELORAZEPAM
     Dosage: 0.5 MG

REACTIONS (1)
  - Serotonin syndrome [Unknown]
